FAERS Safety Report 14619247 (Version 1)
Quarter: 2018Q1

REPORT INFORMATION
  Report Type: Spontaneous
  Country: US (occurrence: US)
  Receive Date: 20180309
  Receipt Date: 20180309
  Transmission Date: 20180509
  Serious: No
  Sender: FDA-Public Use
  Company Number: None

PATIENT
  Age: 71 Year
  Sex: Male

DRUGS (1)
  1. ZYTIGA [Suspect]
     Active Substance: ABIRATERONE ACETATE

REACTIONS (5)
  - Blood pressure increased [None]
  - Headache [None]
  - Visual impairment [None]
  - Fluid retention [None]
  - Arthralgia [None]

NARRATIVE: CASE EVENT DATE: 20180308
